FAERS Safety Report 24189796 (Version 1)
Quarter: 2024Q3

REPORT INFORMATION
  Report Type: Spontaneous
  Country: US (occurrence: US)
  Receive Date: 20240808
  Receipt Date: 20240808
  Transmission Date: 20241017
  Serious: No
  Sender: TARO
  Company Number: US-TARO PHARMACEUTICALS USA INC.-2024TAR00641

PATIENT
  Age: 15 Year
  Sex: Male

DRUGS (1)
  1. ADAPALENE [Suspect]
     Active Substance: ADAPALENE
     Indication: Acne
     Dosage: UNK,  TWO OR MORE TIMES A DAY
     Route: 065
     Dates: start: 202404, end: 202405

REACTIONS (8)
  - Skin haemorrhage [Unknown]
  - Skin exfoliation [Unknown]
  - Skin fissures [Unknown]
  - Skin erosion [Unknown]
  - Pain of skin [Unknown]
  - Erythema [Unknown]
  - Skin burning sensation [Unknown]
  - Condition aggravated [Unknown]

NARRATIVE: CASE EVENT DATE: 20240401
